FAERS Safety Report 9341062 (Version 1)
Quarter: 2013Q2

REPORT INFORMATION
  Report Type: Spontaneous
  Country: BR (occurrence: BR)
  Receive Date: 20130610
  Receipt Date: 20130610
  Transmission Date: 20140414
  Serious: Yes (Hospitalization)
  Sender: FDA-Public Use
  Company Number: BR-B.I. PHARMACEUTICALS,INC./RIDGEFIELD-2013-BR-00692BR

PATIENT
  Age: 68 Year
  Sex: Male
  Weight: 78 kg

DRUGS (11)
  1. SPIRIVA RESPIMAT [Suspect]
     Indication: EMPHYSEMA
     Dosage: 5 MCG
     Route: 055
     Dates: start: 20120626
  2. ENALAPRIL [Concomitant]
     Indication: BLOOD PRESSURE
  3. CARVEDILOL [Concomitant]
     Indication: CARDIAC DISORDER
  4. FUROSEMIDE [Concomitant]
     Indication: SWELLING
     Dosage: 80 MG
  5. SIMVASTATINE [Concomitant]
     Indication: BLOOD CHOLESTEROL
     Dosage: 40 MG
  6. MAREVAN [Concomitant]
     Indication: BLOOD DISORDER
  7. DIGOXIN [Concomitant]
     Dosage: 12.5 MG
  8. ISORDIL [Concomitant]
     Indication: DYSPNOEA
  9. ISOSORBIDE MONONITRATE [Concomitant]
     Indication: FATIGUE
  10. ISOSORBIDE MONONITRATE [Concomitant]
     Indication: DYSPNOEA
  11. INSULIN [Concomitant]
     Indication: DIABETES MELLITUS

REACTIONS (1)
  - Fatigue [Recovered/Resolved]
